FAERS Safety Report 6702808-6 (Version None)
Quarter: 2010Q2

REPORT INFORMATION
  Report Type: 
  Country: None (occurrence: None)
  Receive Date: 20100428
  Receipt Date: 20100415
  Transmission Date: 20101027
  Serious: Yes (Disabling)
  Sender: FDA-Public Use
  Company Number: 2010AP000777

PATIENT
  Age: 63 Year
  Sex: Female

DRUGS (2)
  1. TERBINAFINE HYDROCHLORIDE [Suspect]
     Indication: ONYCHOMYCOSIS
     Dosage: 250 MG; PO
     Route: 048
     Dates: start: 20091101, end: 20091201
  2. LEVOTHYROXINE SODIUM [Concomitant]

REACTIONS (3)
  - AGEUSIA [None]
  - DEPRESSION [None]
  - SALIVARY HYPERSECRETION [None]
